FAERS Safety Report 24720180 (Version 1)
Quarter: 2024Q4

REPORT INFORMATION
  Report Type: Spontaneous
  Country: CA (occurrence: CA)
  Receive Date: 20241211
  Receipt Date: 20241211
  Transmission Date: 20250115
  Serious: Yes (Death, Life-Threatening, Hospitalization, Other)
  Sender: LEO PHARM
  Company Number: None

PATIENT
  Age: 58 Year
  Sex: Male

DRUGS (6)
  1. TACROLIMUS [Suspect]
     Active Substance: TACROLIMUS
     Indication: Immunosuppressant drug therapy
     Dosage: DOSAGE FORM, ROUTE OF ADMINISTRATION, THERAPY DURATION: ASKED BUT UNKNOWN
  2. TACROLIMUS [Suspect]
     Active Substance: TACROLIMUS
     Indication: Immunosuppressant drug therapy
     Dosage: DOSAGE FORM, ROUTE OF ADMINISTRATION, THERAPY DURATION: ASKED BUT UNKNOWN
  3. PREDNISONE [Concomitant]
     Active Substance: PREDNISONE
     Indication: Immunosuppressant drug therapy
     Route: 048
  4. AMPHOTERICIN B [Suspect]
     Active Substance: AMPHOTERICIN B
     Indication: Meningitis cryptococcal
     Dosage: DOSAGE FORM: NOT SPECIFIED
     Route: 042
  5. FLUCYTOSINE [Suspect]
     Active Substance: FLUCYTOSINE
     Indication: Meningitis cryptococcal
     Dosage: DOSAGE FORM: ASKED BUT UNKNOWN
     Route: 048
  6. FLUCONAZOLE [Suspect]
     Active Substance: FLUCONAZOLE
     Indication: Antifungal treatment
     Dosage: DOSAGE FORM, THERAPY DURATION: ASKED BUT UNKNOWN
     Route: 048

REACTIONS (4)
  - Immune reconstitution inflammatory syndrome [Unknown]
  - Cerebral infarction [Fatal]
  - Ischaemic stroke [Unknown]
  - Pneumonitis [Unknown]
